FAERS Safety Report 21229834 (Version 1)
Quarter: 2022Q3

REPORT INFORMATION
  Report Type: Spontaneous
  Country: US (occurrence: US)
  Receive Date: 20220818
  Receipt Date: 20220818
  Transmission Date: 20221026
  Serious: No
  Sender: FDA-Public Use
  Company Number: US-MYLANLABS-2022M1086204

PATIENT

DRUGS (1)
  1. ESTRADIOL TRANSDERMAL SYSTEM [Suspect]
     Active Substance: ESTRADIOL
     Indication: Product used for unknown indication
     Dosage: 0.05 MILLIGRAM, QD (ONCE-WEEKLY) ONE PATCH PER WEEK
     Route: 062

REACTIONS (4)
  - Application site pruritus [Unknown]
  - Application site discolouration [Unknown]
  - Product size issue [Unknown]
  - Product substitution issue [Unknown]
